FAERS Safety Report 9066043 (Version 3)
Quarter: 2013Q2

REPORT INFORMATION
  Report Type: Spontaneous
  Country: JP (occurrence: JP)
  Receive Date: 20130201
  Receipt Date: 20130401
  Transmission Date: 20140414
  Serious: Yes (Life-Threatening, Hospitalization, Other)
  Sender: FDA-Public Use
  Company Number: JP-AMGEN-JPNSP2013006597

PATIENT
  Age: 59 Year
  Sex: Female

DRUGS (20)
  1. ENBREL [Suspect]
     Indication: RHEUMATOID ARTHRITIS
     Dosage: 50 MG, 2X/WEEK
     Route: 058
     Dates: start: 20100510, end: 20100910
  2. ENBREL [Suspect]
     Dosage: 50 MG, WEEKLY
     Route: 058
     Dates: start: 20100910, end: 2012
  3. PREDONINE                          /00016201/ [Concomitant]
     Indication: RHEUMATOID ARTHRITIS
     Dosage: 5 MG OF UNKNOWN FREQUENCY
     Dates: start: 200806
  4. PREDONINE                          /00016201/ [Concomitant]
     Dosage: 4 MG OF UNKNOWN FREQUENCY
     Dates: start: 200812
  5. PREDONINE                          /00016201/ [Concomitant]
     Dosage: 4 MG, 1X/DAY
     Route: 048
     Dates: start: 2012, end: 20120217
  6. PREDONINE                          /00016201/ [Concomitant]
     Dosage: 3 MG, 1X/DAY
     Route: 048
     Dates: start: 20120218
  7. LOXONIN [Concomitant]
     Indication: RHEUMATOID ARTHRITIS
     Dosage: 3 TABLETS OF UNKNOWN FREQUENCY
     Route: 048
     Dates: start: 200806
  8. LOXONIN [Concomitant]
     Dosage: 1 TABLET 3X/DAY
     Route: 048
     Dates: start: 2012
  9. REMICADE [Concomitant]
     Dosage: UNK
     Dates: start: 200905
  10. SELBEX [Concomitant]
     Indication: GASTRIC DISORDER
     Dosage: 1 CAPSULE THREE TIMES DAILY
     Route: 048
     Dates: start: 2012
  11. BAKTAR [Concomitant]
     Indication: PROPHYLAXIS
     Dosage: 1 TABLET ONCE DAILY
     Route: 048
     Dates: start: 200903
  12. BAKTAR [Concomitant]
     Dosage: 1 TABLET ONCE DAILY
     Route: 048
     Dates: start: 20100709
  13. METHOTREXATE [Concomitant]
     Indication: RHEUMATOID ARTHRITIS
     Dosage: 4 CAPSULES WEEKLY, DIVIDED INTO TWICE
     Route: 048
     Dates: start: 20110709
  14. FOLIAMIN [Concomitant]
     Indication: RHEUMATOID ARTHRITIS
     Dosage: 1 TABLET WEEKLY
     Route: 048
     Dates: start: 200901
  15. MYCOSPOR                           /00806601/ [Concomitant]
     Indication: TRICHOPHYTOSIS
     Dosage: 10 G OF UNKNOWN FREQUENCY
     Route: 062
     Dates: start: 20100623
  16. EURAX H [Concomitant]
     Indication: ECZEMA
     Dosage: 5 G AS NEEDED
     Route: 062
     Dates: start: 201007
  17. KERATINAMIN [Concomitant]
     Indication: XERODERMA
     Dosage: 50 G, AS NEEDED
     Route: 062
     Dates: start: 20101030
  18. ZYRTEC [Concomitant]
     Indication: RHINITIS ALLERGIC
     Dosage: 1 DF, 1X/DAY
     Route: 048
     Dates: start: 20110303
  19. RHEUMATREX                         /00113801/ [Concomitant]
     Indication: RHEUMATOID ARTHRITIS
     Dosage: 6 MG, WEEKLY
     Dates: start: 200901, end: 20100901
  20. RHEUMATREX                         /00113801/ [Concomitant]
     Dosage: 8 MG, WEEKLY
     Dates: start: 20100902, end: 20110708

REACTIONS (2)
  - Breast cancer [Unknown]
  - Nasopharyngitis [Recovered/Resolved]
